FAERS Safety Report 5235854-2 (Version None)
Quarter: 2007Q1

REPORT INFORMATION
  Report Type: 
  Country: None (occurrence: None)
  Receive Date: 20061208
  Receipt Date: 20051129
  Transmission Date: 20070707
  Serious: Yes (Other)
  Sender: FDA-Public Use
  Company Number: 2005UW18033

PATIENT
  Age: 72 Year
  Sex: Male
  Weight: 125.64 kg

DRUGS (4)
  1. CRESTOR [Suspect]
     Indication: HIGH DENSITY LIPOPROTEIN DECREASED
     Dosage: 10 MG PO
     Route: 048
  2. ACTOS [Concomitant]
  3. PRANDIN [Concomitant]
  4. SYNTHROID [Concomitant]

REACTIONS (1)
  - WEIGHT INCREASED [None]
